FAERS Safety Report 23118968 (Version 6)
Quarter: 2023Q4

REPORT INFORMATION
  Report Type: Report from Study
  Country: DE (occurrence: DE)
  Receive Date: 20231028
  Receipt Date: 20231221
  Transmission Date: 20240109
  Serious: Yes (Death, Other)
  Sender: FDA-Public Use
  Company Number: DE-AMGEN-UK000359

PATIENT
  Age: 55 Year
  Sex: Female
  Weight: 71 kg

DRUGS (100)
  1. FILGRASTIM [Suspect]
     Active Substance: FILGRASTIM
     Indication: Neutropenia
     Dosage: 700 MICROGRAM, QD
     Route: 042
     Dates: start: 19990521, end: 19990521
  2. METHYLPREDNISOLONE [Suspect]
     Active Substance: METHYLPREDNISOLONE
     Indication: Prophylaxis against graft versus host disease
     Dosage: UNK
     Route: 042
     Dates: start: 19990425, end: 19990425
  3. METHYLPREDNISOLONE [Suspect]
     Active Substance: METHYLPREDNISOLONE
     Dosage: UNK
     Route: 042
     Dates: start: 19990425, end: 19990507
  4. METHYLPREDNISOLONE [Suspect]
     Active Substance: METHYLPREDNISOLONE
     Dosage: UNK
     Route: 042
     Dates: start: 19990427, end: 19990728
  5. METHYLPREDNISOLONE [Suspect]
     Active Substance: METHYLPREDNISOLONE
     Dosage: UNK
     Route: 042
     Dates: start: 19990507
  6. FUROSEMIDE [Suspect]
     Active Substance: FUROSEMIDE
     Indication: Oedema
     Dosage: UNK
     Route: 042
     Dates: start: 19990425, end: 19990425
  7. FUROSEMIDE [Suspect]
     Active Substance: FUROSEMIDE
     Dosage: UNK
     Route: 042
     Dates: start: 19990428, end: 19990502
  8. FUROSEMIDE [Suspect]
     Active Substance: FUROSEMIDE
     Dosage: UNK
     Route: 042
     Dates: start: 19990504, end: 19990504
  9. FUROSEMIDE [Suspect]
     Active Substance: FUROSEMIDE
     Dosage: UNK
     Route: 042
     Dates: start: 19990506
  10. NOVALGINA [Suspect]
     Active Substance: ACETAMINOPHEN\CAFFEINE
     Indication: Pain
     Dosage: UNK
     Route: 042
     Dates: start: 19990427, end: 19990427
  11. NOVALGINA [Suspect]
     Active Substance: ACETAMINOPHEN\CAFFEINE
     Dosage: UNK
     Route: 042
     Dates: start: 19990506, end: 19990516
  12. OFLOXACIN [Suspect]
     Active Substance: OFLOXACIN
     Indication: Pneumonia bacterial
     Dosage: 400 MG, QD
     Route: 042
     Dates: start: 19990428, end: 19990503
  13. OFLOXACIN [Suspect]
     Active Substance: OFLOXACIN
     Dosage: 400 MILLIGRAM
     Route: 048
     Dates: start: 19990527
  14. METHOTREXATE SODIUM [Suspect]
     Active Substance: METHOTREXATE SODIUM
     Indication: Prophylaxis against transplant rejection
     Dosage: UNK
     Route: 042
     Dates: start: 19990429, end: 19990429
  15. METHOTREXATE SODIUM [Suspect]
     Active Substance: METHOTREXATE SODIUM
     Dosage: UNK
     Route: 042
     Dates: start: 19990501, end: 19990501
  16. BROMAZEPAM [Suspect]
     Active Substance: BROMAZEPAM
     Indication: Restlessness
     Dosage: 3 MILLIGRAM, QD 13 DAYS
     Route: 048
     Dates: start: 19990423, end: 19990505
  17. BROMAZEPAM [Suspect]
     Active Substance: BROMAZEPAM
     Dosage: 3 MILLIGRAM, QD 1 DAY
     Route: 048
     Dates: start: 19990430, end: 19990430
  18. BROMAZEPAM [Suspect]
     Active Substance: BROMAZEPAM
     Dosage: 3 MILLIGRAM, QD 3 DAYS
     Route: 048
     Dates: start: 19990503, end: 19990505
  19. NYSTATIN [Suspect]
     Active Substance: NYSTATIN
     Indication: Candida infection
     Dosage: 12 ML, UNCLEAR WHETHER ADMINISTERED 3 OR 4
     Route: 048
     Dates: start: 19990423, end: 19990423
  20. NYSTATIN [Suspect]
     Active Substance: NYSTATIN
     Dosage: 12 ML, UNCLEAR WHETHER ADMINISTERED 3 OR 4
     Route: 048
     Dates: start: 19990516, end: 19990523
  21. AMPHOTERICIN B [Suspect]
     Active Substance: AMPHOTERICIN B
     Indication: Candida infection
     Dosage: 20 MILLIGRAM, QD (4 ML)
     Dates: start: 19990424, end: 19990521
  22. AMPHOTERICIN B [Suspect]
     Active Substance: AMPHOTERICIN B
     Indication: Bronchopulmonary aspergillosis
     Dosage: UNK UNK, QD
     Route: 042
     Dates: start: 19990430
  23. AMPHOTERICIN B [Suspect]
     Active Substance: AMPHOTERICIN B
     Indication: Pneumonia mycoplasmal
  24. MORPHINE [Suspect]
     Active Substance: MORPHINE
     Indication: Pain
     Dosage: 0.5 MILLIGRAM
     Route: 042
     Dates: start: 19990501, end: 19990520
  25. ACETYLCYSTEINE [Suspect]
     Active Substance: ACETYLCYSTEINE
     Indication: Mucositis management
     Dosage: UNK UNK, QD
     Route: 042
     Dates: start: 19990502
  26. OMEPRAZOLE [Suspect]
     Active Substance: OMEPRAZOLE
     Indication: Prophylaxis against gastrointestinal ulcer
     Dosage: 40 MG, QD
     Route: 042
     Dates: start: 19990502
  27. CEFTAZIDIME [Suspect]
     Active Substance: CEFTAZIDIME
     Indication: Pneumonia
     Dosage: 4 GRAM, QD
     Route: 042
     Dates: start: 19990503, end: 19990517
  28. TARGOCID [Suspect]
     Active Substance: TEICOPLANIN
     Indication: Pneumonia
     Dosage: 400 MG, QD
     Route: 042
     Dates: start: 19990503
  29. CAVERJECT [Suspect]
     Active Substance: ALPROSTADIL
     Indication: Poor peripheral circulation
     Dosage: 09 DAYS UNK, DOSAGE FORM: CONCENTRATE SOLUTION FOR INFUSION
     Route: 042
     Dates: start: 19990503, end: 19990511
  30. CAVERJECT [Suspect]
     Active Substance: ALPROSTADIL
     Dosage: UNK
     Route: 042
     Dates: start: 19990521, end: 19990521
  31. TOBRAMYCIN SULFATE [Suspect]
     Active Substance: TOBRAMYCIN SULFATE
     Indication: Pneumonia
     Dosage: UNK UNK, QD
     Route: 042
     Dates: start: 19990511, end: 19990514
  32. TOBRAMYCIN SULFATE [Suspect]
     Active Substance: TOBRAMYCIN SULFATE
     Dosage: UNK
     Route: 042
     Dates: start: 19990519
  33. ALBUMIN HUMAN [Suspect]
     Active Substance: ALBUMIN HUMAN
     Indication: Hypoalbuminaemia
     Dosage: 250 MILLILITER
     Route: 042
     Dates: start: 19990516, end: 19990516
  34. ACTRAPID [Suspect]
     Active Substance: INSULIN HUMAN
     Indication: Hyperglycaemia
     Dosage: UNK, QD
     Route: 042
     Dates: start: 19990519, end: 19990520
  35. ACTRAPID [Suspect]
     Active Substance: INSULIN HUMAN
     Dosage: UNK, QD
     Route: 042
     Dates: start: 19990510, end: 19990520
  36. ACTRAPID [Suspect]
     Active Substance: INSULIN HUMAN
     Dosage: UNK, 1 DOSAGE TOTAL
     Route: 042
     Dates: start: 19990517, end: 19990517
  37. ERYTHROMYCIN [Suspect]
     Active Substance: ERYTHROMYCIN
     Indication: Pneumonia
     Dosage: 1500 MG, QD
     Route: 042
     Dates: start: 19990517
  38. CILASTATIN SODIUM\IMIPENEM [Suspect]
     Active Substance: CILASTATIN SODIUM\IMIPENEM
     Indication: Pneumonia
     Dosage: 1500 MG, QD
     Route: 042
     Dates: start: 19990517
  39. ISOPROMETHAZINE HYDROCHLORIDE [Suspect]
     Active Substance: ISOPROMETHAZINE HYDROCHLORIDE
     Indication: Product used for unknown indication
     Dosage: 25 MG, QD DAILY DOSE
     Route: 042
     Dates: start: 19990518, end: 19990520
  40. DOXYCYCLINE [Suspect]
     Active Substance: DOXYCYCLINE
     Indication: Pneumonia
     Dosage: UNK, 1 DOSAGE TOTAL
     Route: 048
     Dates: start: 19990518, end: 19990519
  41. DOXYCYCLINE [Suspect]
     Active Substance: DOXYCYCLINE
     Dosage: UNK, 1 DOSAGE TOTAL
     Route: 042
  42. PLASMA PROTEIN FRACTION (HUMAN) [Suspect]
     Active Substance: PLASMA PROTEIN FRACTION (HUMAN)
     Indication: Product used for unknown indication
     Dosage: UNK, QD
     Route: 042
     Dates: start: 19990519, end: 19990519
  43. DEXPANTHENOL [Suspect]
     Active Substance: DEXPANTHENOL
     Indication: Bronchospasm
     Dosage: UNK
     Route: 055
     Dates: start: 19990519, end: 19990520
  44. GANCICLOVIR [Suspect]
     Active Substance: GANCICLOVIR
     Indication: Prophylaxis
     Dosage: UNK, QD
     Route: 042
     Dates: start: 19990519
  45. SULTANOL [Suspect]
     Active Substance: ALBUTEROL SULFATE
     Indication: Bronchospasm
     Dosage: UNK, QD
     Route: 055
     Dates: start: 19990519
  46. THEOPHYLLINE [Suspect]
     Active Substance: THEOPHYLLINE
     Indication: Bronchospasm
     Dosage: 4 MILLILITER
     Route: 042
     Dates: start: 19990519, end: 19990520
  47. THEOPHYLLINE SODIUM GLYCINATE [Suspect]
     Active Substance: THEOPHYLLINE SODIUM GLYCINATE
     Indication: Respiratory failure
     Dosage: 400 MG
     Route: 042
     Dates: start: 19990520, end: 19990520
  48. THEOPHYLLINE SODIUM GLYCINATE [Suspect]
     Active Substance: THEOPHYLLINE SODIUM GLYCINATE
     Indication: Respiratory failure
  49. ATORVASTATIN CALCIUM [Suspect]
     Active Substance: ATORVASTATIN CALCIUM
     Indication: Restlessness
     Dosage: 1 MG, UNK
     Route: 042
     Dates: start: 19990519, end: 19990520
  50. VANCOMYCIN [Suspect]
     Active Substance: VANCOMYCIN
     Indication: Pneumonia
     Dosage: 1 GRAM
     Route: 042
     Dates: start: 19990521, end: 19990521
  51. NOREPINEPHRINE HYDROCHLORIDE, (+/-)- [Suspect]
     Active Substance: NOREPINEPHRINE HYDROCHLORIDE, (+/-)-
     Indication: Cardiovascular disorder
     Dosage: UNK, QD
     Route: 042
     Dates: start: 19990521, end: 19990521
  52. ATROVENT [Suspect]
     Active Substance: IPRATROPIUM BROMIDE
     Indication: Respiratory failure
     Dosage: , DOSE: INHALATION
     Route: 055
     Dates: start: 19990521, end: 19990521
  53. PROPOFOL [Suspect]
     Active Substance: PROPOFOL
     Indication: Anaesthesia
     Dosage: 15 MILLILITER
     Route: 042
     Dates: start: 19990521, end: 19990521
  54. SUFENTA [Suspect]
     Active Substance: SUFENTANIL CITRATE
     Indication: Anaesthesia
     Dosage: 3 MILLILITER
     Route: 042
     Dates: start: 19990521, end: 19990521
  55. THEOPHYLLINE ANHYDROUS [Suspect]
     Active Substance: THEOPHYLLINE ANHYDROUS
     Indication: Dyspnoea
     Dosage: 400 MILLIGRAM, QD
     Route: 042
     Dates: start: 19990519, end: 19990519
  56. THEOPHYLLINE ANHYDROUS [Suspect]
     Active Substance: THEOPHYLLINE ANHYDROUS
     Indication: Respiratory failure
     Dosage: 400 MILLIGRAM, QD
     Route: 042
     Dates: start: 19990520, end: 19990520
  57. TRIFLUSAL [Suspect]
     Active Substance: TRIFLUSAL
     Indication: Metabolic acidosis
     Dosage: 1 DAY
     Route: 042
     Dates: start: 19990518, end: 19990518
  58. KONAKION [Concomitant]
     Active Substance: PHYTONADIONE
     Indication: Vitamin K deficiency
     Dosage: 10 MG
     Route: 042
     Dates: start: 19900426, end: 19900517
  59. LENOGRASTIM [Concomitant]
     Active Substance: LENOGRASTIM
     Indication: Neutropenia
     Dosage: UNK
     Route: 065
     Dates: start: 19900429
  60. VITINTRA [Concomitant]
     Active Substance: ERGOCALCIFEROL\PHYTONADIONE\RETINOL\VITAMIN A PALMITATE
     Indication: Nutritional supplementation
     Dosage: UNK
     Route: 065
  61. MAGNESIUM ASPARTATE\POTASSIUM ASPARTATE [Concomitant]
     Active Substance: MAGNESIUM ASPARTATE\POTASSIUM ASPARTATE
     Indication: Nutritional supplementation
     Dosage: 10 MILLILITER, QD ONCE A DAY
     Route: 042
  62. MAGNESIUM ASPARTATE\POTASSIUM ASPARTATE [Concomitant]
     Active Substance: MAGNESIUM ASPARTATE\POTASSIUM ASPARTATE
     Dosage: 10 MILLILITER, QD ONCE A DAY
     Route: 042
  63. MAGNESIUM ASPARTATE\POTASSIUM ASPARTATE [Concomitant]
     Active Substance: MAGNESIUM ASPARTATE\POTASSIUM ASPARTATE
     Dosage: 10 MILLILITER, QD ONCE A DAY
     Route: 042
  64. SOYBEAN OIL [Concomitant]
     Active Substance: SOYBEAN OIL
     Indication: Nutritional supplementation
     Dosage: 200 MILLILITER, QD
     Route: 042
  65. SODIUM CHLORIDE [Concomitant]
     Active Substance: SODIUM CHLORIDE
     Indication: Hyponatraemia
     Dosage: 3 DAYS
     Route: 042
     Dates: start: 19990424, end: 19990426
  66. SODIUM CHLORIDE [Concomitant]
     Active Substance: SODIUM CHLORIDE
     Indication: Volume blood decreased
     Dosage: 50 MILLILITER, QD 7 DAYS
     Route: 042
     Dates: start: 19990429, end: 19990505
  67. SODIUM CHLORIDE [Concomitant]
     Active Substance: SODIUM CHLORIDE
     Dosage: 50 MILLILITER, QD 12 DAYS
     Route: 042
     Dates: start: 19990424, end: 19990505
  68. VITAMINS [Concomitant]
     Active Substance: VITAMINS
     Indication: Nutritional supplementation
     Dosage: UNK
  69. SEMPERA [Concomitant]
     Active Substance: ITRACONAZOLE
     Indication: Fungal infection
     Dosage: 200 MILLIGRAM, QD
     Route: 048
     Dates: start: 19990429
  70. SODIUM BICARBONATE [Concomitant]
     Active Substance: SODIUM BICARBONATE
     Indication: Product used for unknown indication
     Dosage: UNK
     Route: 065
     Dates: start: 19990517, end: 19990517
  71. PHENYTOIN [Concomitant]
     Active Substance: PHENYTOIN
     Indication: Prophylaxis
     Dosage: 400 MG, QD
     Route: 048
     Dates: start: 19990419, end: 19990427
  72. ZOVIRAX [Concomitant]
     Active Substance: ACYCLOVIR
     Indication: Prophylaxis
     Dosage: UNK
     Route: 065
     Dates: start: 19990419, end: 19990426
  73. ZOVIRAX [Concomitant]
     Active Substance: ACYCLOVIR
     Dosage: UNK
     Route: 042
     Dates: start: 19990426, end: 19990519
  74. CLEMASTINE FUMARATE [Concomitant]
     Active Substance: CLEMASTINE FUMARATE
     Indication: Pruritus
     Dosage: UNK, QD
     Dates: start: 19990524
  75. MYLERAN [Concomitant]
     Active Substance: BUSULFAN
     Indication: Bone marrow transplant
     Dosage: 284 MG, QD
     Route: 065
     Dates: start: 19990423, end: 19990423
  76. CYCLOPHOSPHAMIDE [Suspect]
     Active Substance: CYCLOPHOSPHAMIDE
     Indication: Bone marrow transplant
     Dosage: 4260 MILLIGRAM, QD
     Route: 065
     Dates: start: 19990425, end: 19990426
  77. ETOPOSIDE [Concomitant]
     Active Substance: ETOPOSIDE
     Indication: Bone marrow transplant
     Dosage: 2130 MILLIGRAM, QD
     Route: 065
     Dates: start: 19990424, end: 19990424
  78. HEPARIN [Concomitant]
     Active Substance: HEPARIN SODIUM
     Indication: Thrombosis prophylaxis
     Dosage: 18000 INTERNATIONAL UNIT, QD
     Dates: start: 19990427
  79. DEXAMETHASONE [Concomitant]
     Active Substance: DEXAMETHASONE
     Indication: Bone marrow transplant
     Dosage: 24 MILLIGRAM, QD
     Route: 042
     Dates: start: 19990424, end: 19990426
  80. MAGNESIUM [Concomitant]
     Active Substance: MAGNESIUM
     Indication: Hypomagnesaemia
     Dosage: UNK, INTERMITTENT DOSING
     Route: 042
     Dates: start: 19990429, end: 19990513
  81. ZOFRAN [Concomitant]
     Active Substance: ONDANSETRON HYDROCHLORIDE
     Indication: Nausea
     Dosage: 16 MILLIGRAM, QWK
     Route: 048
     Dates: start: 19990426
  82. ZOFRAN [Concomitant]
     Active Substance: ONDANSETRON HYDROCHLORIDE
     Dosage: UNK, QWK
     Route: 042
     Dates: start: 19990427, end: 19990503
  83. PENTACARINAT [Concomitant]
     Active Substance: PENTAMIDINE ISETHIONATE
     Indication: Pneumonia
     Dosage: 300 MILLIGRAM, QD
     Dates: start: 19990425
  84. CYCLOSPORINE [Concomitant]
     Active Substance: CYCLOSPORINE
     Indication: Bone marrow transplant
     Dosage: UNK
     Route: 042
     Dates: start: 19990421, end: 19990427
  85. CYCLOSPORINE [Concomitant]
     Active Substance: CYCLOSPORINE
     Dosage: UNK
     Route: 042
     Dates: start: 19990427, end: 19990521
  86. DEXTROSE [Concomitant]
     Active Substance: DEXTROSE\DEXTROSE MONOHYDRATE
     Indication: Nutritional supplementation
     Dosage: 5 OR 40% SOLUTIONS. NOT GIVEN 28 MAY TO 16
     Route: 065
     Dates: start: 19990424
  87. CALCIUM GLUCONATE [Concomitant]
     Active Substance: CALCIUM GLUCONATE
     Indication: Hypocalcaemia
     Dosage: 20 MILLILITER, QD
     Route: 065
     Dates: start: 19990429, end: 19990508
  88. LAPINE T-LYMPHOCYTE IMMUNE GLOBULIN [Concomitant]
     Active Substance: LAPINE T-LYMPHOCYTE IMMUNE GLOBULIN
     Indication: Bone marrow transplant
     Dosage: UNK UNK, QD
     Route: 065
     Dates: start: 19990427, end: 19990427
  89. Clont [Concomitant]
     Indication: Pneumonia bacterial
     Dosage: 1500 MILLIGRAM, QD
     Route: 048
     Dates: start: 19990428
  90. Clont [Concomitant]
     Indication: Bacterial infection
  91. OCTAGAM IMMUNE GLOBULIN (HUMAN) [Concomitant]
     Active Substance: HUMAN IMMUNOGLOBULIN G
     Indication: Bone marrow transplant
     Dosage: UNK, INTERMITTENT DOSING
     Route: 065
     Dates: start: 19990419, end: 19990429
  92. FAMOTIDINE [Concomitant]
     Active Substance: FAMOTIDINE
     Indication: Prophylaxis against gastrointestinal ulcer
     Dosage: 40 MG, QD
     Route: 042
     Dates: start: 19990502
  93. MESNA [Suspect]
     Active Substance: MESNA
     Indication: Prophylaxis
     Dosage: UNK
     Route: 042
     Dates: start: 19990425, end: 19990426
  94. KCL [Concomitant]
     Active Substance: POTASSIUM CHLORIDE
     Indication: Hypokalaemia
     Dosage: UNK
     Route: 042
     Dates: start: 19990424
  95. AMINO ACIDS, SOURCE UNSPECIFIED [Concomitant]
     Active Substance: AMINO ACIDS, SOURCE UNSPECIFIED
     Indication: Nutritional supplementation
     Dosage: 100 MILLILITER, QD
     Route: 065
  96. DEXPANTHENOL [Suspect]
     Active Substance: DEXPANTHENOL
     Indication: Bronchospasm
     Dosage: UNK
     Route: 055
     Dates: start: 19990519, end: 19990520
  97. LETROZOLE [Suspect]
     Active Substance: LETROZOLE
     Indication: Coagulopathy
     Dosage: 2 DOSAGE FORM, QD
     Route: 065
     Dates: start: 19990519, end: 19990519
  98. PROMETHAZINE HYDROCHLORIDE [Suspect]
     Active Substance: PROMETHAZINE HYDROCHLORIDE
     Indication: Restlessness
     Dosage: UNK
     Route: 042
     Dates: start: 19990518, end: 19990520
  99. PANTOPRAZOLE SODIUM [Suspect]
     Active Substance: PANTOPRAZOLE SODIUM
     Indication: Prophylaxis against gastrointestinal ulcer
     Dosage: UNK
     Route: 042
     Dates: start: 19990521
  100. TARAXACUM OFFICINALE EXTRACT [Concomitant]
     Indication: Nutritional supplementation
     Dosage: UNK, GIVEN ON 18 MAY AND 21 MAY
     Route: 042
     Dates: start: 19990518, end: 19990521

REACTIONS (2)
  - Stevens-Johnson syndrome [Fatal]
  - Toxic epidermal necrolysis [Unknown]

NARRATIVE: CASE EVENT DATE: 19990521
